FAERS Safety Report 18196546 (Version 2)
Quarter: 2020Q3

REPORT INFORMATION
  Report Type: Spontaneous
  Country: US (occurrence: US)
  Receive Date: 20200825
  Receipt Date: 20200924
  Transmission Date: 20201103
  Serious: Yes (Hospitalization)
  Sender: FDA-Public Use
  Company Number: US-ALVOGEN-2020-ALVOGEN-113854

PATIENT
  Age: 44 Year
  Sex: Female

DRUGS (2)
  1. GRALISE [Suspect]
     Active Substance: GABAPENTIN
     Indication: PRODUCT USED FOR UNKNOWN INDICATION
     Dosage: STRENGTH: 600 MG, QD
     Route: 048
  2. GRALISE [Suspect]
     Active Substance: GABAPENTIN
     Indication: PRODUCT USED FOR UNKNOWN INDICATION
     Dosage: STRENGTH: 600 MG, QD
     Route: 048

REACTIONS (11)
  - Dysarthria [Unknown]
  - Feeling abnormal [Unknown]
  - Urinary incontinence [Unknown]
  - Swelling [Unknown]
  - Hypoaesthesia [Not Recovered/Not Resolved]
  - Blindness [Unknown]
  - Balance disorder [Unknown]
  - Depressed mood [Unknown]
  - Weight increased [Unknown]
  - Depression [Unknown]
  - Headache [Not Recovered/Not Resolved]

NARRATIVE: CASE EVENT DATE: 20200707
